FAERS Safety Report 7138759-5 (Version None)
Quarter: 2010Q4

REPORT INFORMATION
  Report Type: 
  Country: None (occurrence: None)
  Receive Date: 20101206
  Receipt Date: 20101123
  Transmission Date: 20110411
  Serious: Yes (Other)
  Sender: FDA-Public Use
  Company Number: US-ELI_LILLY_AND_COMPANY-US201011006154

PATIENT
  Sex: Male
  Weight: 113.38 kg

DRUGS (7)
  1. BYETTA [Suspect]
     Indication: TYPE 2 DIABETES MELLITUS
     Dosage: 5 UG, MONTHLY (1/M)
     Route: 058
  2. HUMULIN N [Concomitant]
     Indication: TYPE 2 DIABETES MELLITUS
  3. GLYBURIDE [Concomitant]
     Dosage: 5 MG, UNK
  4. LOSARTAN [Concomitant]
     Indication: HYPERTENSION
  5. AMLODIPINE [Concomitant]
     Indication: HYPERTENSION
  6. SPIRONOLACTONE [Concomitant]
     Dosage: UNK, 3/W
  7. CELEBREX [Concomitant]
     Indication: ARTHRALGIA

REACTIONS (7)
  - BLOOD GLUCOSE DECREASED [None]
  - BRONCHIAL DISORDER [None]
  - HYPERHIDROSIS [None]
  - INCORRECT DRUG ADMINISTRATION DURATION [None]
  - INFECTION [None]
  - INTENTIONAL DRUG MISUSE [None]
  - OFF LABEL USE [None]
